FAERS Safety Report 5335791-9 (Version None)
Quarter: 2007Q2

REPORT INFORMATION
  Report Type: 
  Country: None (occurrence: None)
  Receive Date: 20070322
  Receipt Date: 20061215
  Transmission Date: 20071010
  Serious: Yes (Hospitalization)
  Sender: FDA-Public Use
  Company Number: US-CVT-062417

PATIENT
  Age: 75 Year
  Sex: Male

DRUGS (12)
  1. RANEXA [Suspect]
     Indication: ANGINA PECTORIS
     Dosage: 500 MG, BID, ORAL
     Route: 048
     Dates: start: 20061003
  2. CARDIZEM [Suspect]
     Dosage: 120 MG, QD, ORAL
     Route: 048
     Dates: end: 20060101
  3. GLUCOPHAGE/00082701/ (METFORMIN) [Concomitant]
  4. IMDUR [Concomitant]
  5. COREG [Concomitant]
  6. LIPITOR/01326101/ (ATORVASTATIN) [Concomitant]
  7. COUMADIN [Concomitant]
  8. PROTONIX/01263201/ (PANTOPRAZOLE) [Concomitant]
  9. OMEGA 3 (FISH OIL) [Concomitant]
  10. LOPRESSOR [Concomitant]
  11. VASOTEC [Concomitant]
  12. PRINIVIL [Concomitant]

REACTIONS (3)
  - CARDIAC FAILURE [None]
  - CHEST PAIN [None]
  - DYSPNOEA [None]
